FAERS Safety Report 6373559-5 (Version None)
Quarter: 2009Q3

REPORT INFORMATION
  Report Type: 
  Country: None (occurrence: None)
  Receive Date: 20090924
  Receipt Date: 20090211
  Transmission Date: 20100115
  Serious: Yes (Hospitalization)
  Sender: FDA-Public Use
  Company Number: US-ASTRAZENECA-2009UW03966

PATIENT
  Age: 55 Year
  Sex: Female

DRUGS (6)
  1. SEROQUEL [Suspect]
     Indication: BIPOLAR DISORDER
     Route: 048
     Dates: end: 20080601
  2. SEROQUEL [Suspect]
     Route: 048
     Dates: end: 20080601
  3. PAXIL [Concomitant]
  4. BENTYL [Concomitant]
  5. VICODIN [Concomitant]
  6. GLUCOPHAGE [Concomitant]

REACTIONS (2)
  - ABDOMINAL PAIN [None]
  - CONSTIPATION [None]
